FAERS Safety Report 19747287 (Version 2)
Quarter: 2022Q2

REPORT INFORMATION
  Report Type: Spontaneous
  Country: US (occurrence: US)
  Receive Date: 20210825
  Receipt Date: 20220502
  Transmission Date: 20220721
  Serious: No
  Sender: FDA-Public Use
  Company Number: US-PFIZER INC-2021148079

PATIENT
  Age: 57 Year
  Sex: Female
  Weight: 68.04 kg

DRUGS (2)
  1. NICOTROL [Suspect]
     Active Substance: NICOTINE
     Indication: Nicotine dependence
     Dosage: INHALE 1 PUFF EVERY 5 HOURS AS NEEDED FOR NICOTINE CRAVINGS
     Dates: start: 2020
  2. NICOTROL [Suspect]
     Active Substance: NICOTINE
     Dosage: INHALE 1 PUFF EVERY 5 HOURS AS NEEDED FOR NICOTINE CRAVINGS
     Dates: start: 2020

REACTIONS (6)
  - Off label use [Unknown]
  - Product use issue [Unknown]
  - Influenza [Recovered/Resolved]
  - Product quality issue [Unknown]
  - Cough [Unknown]
  - Illness [Unknown]

NARRATIVE: CASE EVENT DATE: 20200101
